FAERS Safety Report 7349750-8 (Version None)
Quarter: 2011Q1

REPORT INFORMATION
  Report Type: 
  Country: None (occurrence: None)
  Receive Date: 20110314
  Receipt Date: 20110302
  Transmission Date: 20110831
  Serious: Yes (Congenital Anomaly, Other)
  Sender: FDA-Public Use
  Company Number: CH-ASTRAZENECA-2011SE12178

PATIENT
  Sex: Female
  Weight: 7.9 kg

DRUGS (3)
  1. ZANIDIP [Suspect]
     Indication: RENAL HYPERTENSION
     Dates: start: 20100401
  2. BELOC ZOK [Suspect]
     Indication: RENAL HYPERTENSION
     Dates: start: 20100101
  3. ALDACTONE [Suspect]
     Indication: RENAL HYPERTENSION
     Dates: start: 20100701

REACTIONS (5)
  - HYPERTENSION NEONATAL [None]
  - NEONATAL RESPIRATORY DISTRESS SYNDROME [None]
  - PNEUMOTHORAX [None]
  - PREMATURE BABY [None]
  - ATRIAL SEPTAL DEFECT [None]
